FAERS Safety Report 14664070 (Version 1)
Quarter: 2018Q1

REPORT INFORMATION
  Report Type: Spontaneous
  Country: US (occurrence: US)
  Receive Date: 20180321
  Receipt Date: 20180321
  Transmission Date: 20180509
  Serious: No
  Sender: FDA-Public Use
  Company Number: US-AAA-201700177

PATIENT
  Age: 50 Year
  Sex: Female
  Weight: 68 kg

DRUGS (9)
  1. LORAZEPAM. [Concomitant]
     Active Substance: LORAZEPAM
     Indication: PRODUCT USED FOR UNKNOWN INDICATION
     Dosage: NUMBER OF SEPARATE DOSAGES: 1
     Route: 048
  2. MELATONIN [Concomitant]
     Active Substance: MELATONIN
     Indication: PRODUCT USED FOR UNKNOWN INDICATION
     Dosage: NUMBER OF SEPARATE DOSAGES: 1
     Route: 048
  3. PROGESTERONE. [Concomitant]
     Active Substance: PROGESTERONE
     Indication: PRODUCT USED FOR UNKNOWN INDICATION
     Dosage: NUMBER OF SEPARATE DOSAGES: 1
     Route: 048
  4. CURCUMINOIDS [Concomitant]
     Indication: PRODUCT USED FOR UNKNOWN INDICATION
     Dosage: NUMBER OF SEPARATE DOSAGES: 1
     Route: 048
  5. CHOLINE MAGNESIUM TRISALICYLATE. [Concomitant]
     Active Substance: CHOLINE MAGNESIUM TRISALICYLATE
     Indication: PRODUCT USED FOR UNKNOWN INDICATION
     Dosage: NUMBER OF SEPARATE DOSAGES: 1
     Route: 048
  6. CELEXA 20 MG TABLET, FILM COATED [Concomitant]
     Indication: PRODUCT USED FOR UNKNOWN INDICATION
     Dosage: NUMBER OF SEPARATE DOSAGES: 1
     Route: 048
  7. NETSPOT [Suspect]
     Active Substance: DOTATATE GALLIUM GA-68
     Indication: POSITRON EMISSION TOMOGRAM
     Dosage: NUMBER OF SEPARATE DOSAGES: 1
     Route: 042
     Dates: start: 20170728, end: 20170728
  8. FISH OIL [Concomitant]
     Active Substance: FISH OIL
     Indication: PRODUCT USED FOR UNKNOWN INDICATION
     Dosage: NUMBER OF SEPARATE DOSAGES: 1
     Route: 048
  9. MECLIZINE 25 MG TABLET [Concomitant]
     Indication: PRODUCT USED FOR UNKNOWN INDICATION
     Dosage: NUMBER OF SEPARATE DOSAGES: 1
     Route: 048

REACTIONS (4)
  - Burning sensation [Recovered/Resolved]
  - Chest pain [Recovered/Resolved]
  - Infusion site pain [None]
  - Nausea [Recovered/Resolved]

NARRATIVE: CASE EVENT DATE: 20170728
